FAERS Safety Report 11679338 (Version 2)
Quarter: 2015Q4

REPORT INFORMATION
  Report Type: Spontaneous
  Country: US (occurrence: US)
  Receive Date: 20151027
  Receipt Date: 20151104
  Transmission Date: 20160304
  Serious: No
  Sender: FDA-Public Use
  Company Number: US-ELI_LILLY_AND_COMPANY-US201002007068

PATIENT
  Age: 62 Year
  Sex: Female

DRUGS (5)
  1. FORTEO [Suspect]
     Active Substance: TERIPARATIDE
     Dosage: 20 UG, QD
  2. FORTEO [Suspect]
     Active Substance: TERIPARATIDE
     Dosage: 20 UG, DAILY (1/D)
     Route: 065
  3. FORTEO [Suspect]
     Active Substance: TERIPARATIDE
     Dosage: 20 UG, QD
     Route: 065
  4. FORTEO [Suspect]
     Active Substance: TERIPARATIDE
     Indication: OSTEOPOROSIS
     Dosage: 20 UG, DAILY (1/D)
     Dates: start: 200909, end: 20100209
  5. FORTEO [Suspect]
     Active Substance: TERIPARATIDE
     Dosage: 20 UG, DAILY (1/D)
     Dates: start: 201007

REACTIONS (16)
  - Rhinorrhoea [Unknown]
  - Dysstasia [Not Recovered/Not Resolved]
  - Flank pain [Unknown]
  - Insomnia [Unknown]
  - Muscular weakness [Unknown]
  - Bone pain [Unknown]
  - Gait disturbance [Unknown]
  - Arthralgia [Unknown]
  - Arthropathy [Unknown]
  - Limb discomfort [Unknown]
  - Sinus disorder [Recovering/Resolving]
  - Laryngitis [Unknown]
  - Toothache [Unknown]
  - Pain [Unknown]
  - Nasopharyngitis [Recovering/Resolving]
  - Pain in extremity [Unknown]

NARRATIVE: CASE EVENT DATE: 200909
